FAERS Safety Report 9110125 (Version 2)
Quarter: 2013Q1

REPORT INFORMATION
  Report Type: Spontaneous
  Country: US (occurrence: US)
  Receive Date: 20130222
  Receipt Date: 20130325
  Transmission Date: 20140127
  Serious: No
  Sender: FDA-Public Use
  Company Number: US-TEVA-387728USA

PATIENT
  Age: 37 Year
  Sex: Female

DRUGS (1)
  1. ACTIQ [Suspect]

REACTIONS (1)
  - Drug prescribing error [Unknown]
